FAERS Safety Report 4892679-5 (Version None)
Quarter: 2006Q1

REPORT INFORMATION
  Report Type: 
  Country: None (occurrence: None)
  Receive Date: 20060125
  Receipt Date: 20060125
  Transmission Date: 20060701
  Serious: Yes (Hospitalization)
  Sender: FDA-Public Use
  Company Number: None

PATIENT
  Age: 79 Year
  Sex: Female
  Weight: 83.8 kg

DRUGS (11)
  1. GENTAMICIN [Suspect]
     Indication: URINARY TRACT INFECTION
     Dosage: 120MG IV X 1
     Route: 042
     Dates: start: 20050803
  2. TEMAZEPAM [Concomitant]
  3. APAP TAB [Concomitant]
  4. DOCUSATE [Concomitant]
  5. MOM [Concomitant]
  6. LANSOPRAZOLE [Concomitant]
  7. OXYCODONE AND ACETAMINOPHEN [Concomitant]
  8. ASPIRIN [Concomitant]
  9. ATENOLOL [Concomitant]
  10. ALLOPURINOL [Concomitant]
  11. LACTOBACILLUS [Concomitant]

REACTIONS (1)
  - RASH [None]
